FAERS Safety Report 12963977 (Version 1)
Quarter: 2016Q4

REPORT INFORMATION
  Report Type: Report from Study
  Country: BR (occurrence: BR)
  Receive Date: 20161122
  Receipt Date: 20161122
  Transmission Date: 20170207
  Serious: Yes (Other)
  Sender: FDA-Public Use
  Company Number: PHHY2016BR159680

PATIENT
  Sex: Female
  Weight: 88 kg

DRUGS (4)
  1. DIAMICRON [Concomitant]
     Active Substance: GLICLAZIDE
     Indication: DIABETES MELLITUS
     Dosage: 30 MG, QD
     Route: 048
  2. DIOVAN HCT [Suspect]
     Active Substance: HYDROCHLOROTHIAZIDE\VALSARTAN
     Indication: CARDIAC DISORDER
     Dosage: 1 DF, QD (HYDROCHLOROTHIAZIDE 12.5MG, VALSARTAN 160 MG)
     Route: 048
  3. DIOVAN [Suspect]
     Active Substance: VALSARTAN
     Indication: PRODUCT USED FOR UNKNOWN INDICATION
     Dosage: 80 MG,
     Route: 065
  4. LESITON [Concomitant]
     Indication: PRODUCT USED FOR UNKNOWN INDICATION
     Route: 065

REACTIONS (11)
  - Deafness [Unknown]
  - Syncope [Unknown]
  - Swelling [Unknown]
  - Head injury [Unknown]
  - Ear pruritus [Unknown]
  - Ear disorder [Unknown]
  - Nervousness [Unknown]
  - Obesity [Unknown]
  - Fall [Unknown]
  - Product use issue [Unknown]
  - Visual acuity reduced [Unknown]
